FAERS Safety Report 11552107 (Version 1)
Quarter: 2015Q3

REPORT INFORMATION
  Report Type: Spontaneous
  Country: US (occurrence: US)
  Receive Date: 20150903
  Receipt Date: 20150903
  Transmission Date: 20151125
  Serious: No
  Sender: FDA-Public Use
  Company Number: US-ELI_LILLY_AND_COMPANY-US201006004712

PATIENT
  Age: 68 Year
  Sex: Male

DRUGS (4)
  1. HUMALOG MIX75/25 [Suspect]
     Active Substance: INSULIN LISPRO
     Indication: DIABETES MELLITUS
     Dosage: 14 U, EACH MORNING
  2. METFORMIN [Concomitant]
     Active Substance: METFORMIN HYDROCHLORIDE
     Dosage: 2 D/F, 2/D
  3. ACTOS /01460201/ [Concomitant]
     Dosage: UNK, 2/D
  4. HUMALOG MIX75/25 [Suspect]
     Active Substance: INSULIN LISPRO
     Dosage: 16 U, EACH EVENING

REACTIONS (6)
  - Blood glucose decreased [Recovered/Resolved]
  - Irritability [Recovered/Resolved]
  - Blood glucose increased [Recovered/Resolved]
  - Confusional state [Recovered/Resolved]
  - Incorrect dose administered [Recovered/Resolved]
  - Disorientation [Recovered/Resolved]

NARRATIVE: CASE EVENT DATE: 20100612
